FAERS Safety Report 8664646 (Version 3)
Quarter: 2013Q2

REPORT INFORMATION
  Report Type: Spontaneous
  Country: US (occurrence: US)
  Receive Date: 20120713
  Receipt Date: 20130429
  Transmission Date: 20140414
  Serious: No
  Sender: FDA-Public Use
  Company Number: US-ASTRAZENECA-2012SE30230

PATIENT
  Age: 57 Year
  Sex: Female
  Weight: 63.5 kg

DRUGS (23)
  1. SEROQUEL [Suspect]
     Indication: ANXIETY
     Route: 048
  2. SEROQUEL [Suspect]
     Indication: DEPRESSION
     Route: 048
  3. SEROQUEL [Suspect]
     Indication: HEADACHE
     Route: 048
  4. SEROQUEL [Suspect]
     Indication: ANXIETY
     Route: 048
  5. SEROQUEL [Suspect]
     Indication: DEPRESSION
     Route: 048
  6. SEROQUEL [Suspect]
     Indication: HEADACHE
     Route: 048
  7. SEROQUEL [Suspect]
     Indication: ANXIETY
     Route: 048
  8. SEROQUEL [Suspect]
     Indication: DEPRESSION
     Route: 048
  9. SEROQUEL [Suspect]
     Indication: HEADACHE
     Route: 048
  10. SEROQUEL [Suspect]
     Indication: ANXIETY
     Route: 048
     Dates: start: 2012, end: 2012
  11. SEROQUEL [Suspect]
     Indication: DEPRESSION
     Route: 048
     Dates: start: 2012, end: 2012
  12. SEROQUEL [Suspect]
     Indication: HEADACHE
     Route: 048
     Dates: start: 2012, end: 2012
  13. SEROQUEL [Suspect]
     Indication: ANXIETY
     Dosage: GENERIC, 400 MG DAILY
     Route: 048
     Dates: start: 2012, end: 2012
  14. SEROQUEL [Suspect]
     Indication: DEPRESSION
     Dosage: GENERIC, 400 MG DAILY
     Route: 048
     Dates: start: 2012, end: 2012
  15. SEROQUEL [Suspect]
     Indication: HEADACHE
     Dosage: GENERIC, 400 MG DAILY
     Route: 048
     Dates: start: 2012, end: 2012
  16. SEROQUEL [Suspect]
     Indication: ANXIETY
     Route: 048
     Dates: start: 2012
  17. SEROQUEL [Suspect]
     Indication: DEPRESSION
     Route: 048
     Dates: start: 2012
  18. SEROQUEL [Suspect]
     Indication: HEADACHE
     Route: 048
     Dates: start: 2012
  19. BUPROPION [Concomitant]
  20. ACYCLOVIR [Concomitant]
     Indication: GENITAL HERPES
  21. ALPRAZOLAM [Concomitant]
  22. ZOLPIDEM [Concomitant]
     Indication: SLEEP DISORDER
  23. PROMETHAZINE [Concomitant]
     Indication: VOMITING

REACTIONS (11)
  - Headache [Unknown]
  - Nausea [Unknown]
  - Post-traumatic stress disorder [Unknown]
  - Insomnia [Unknown]
  - Therapeutic response unexpected [Unknown]
  - Back pain [Recovered/Resolved]
  - Urine odour abnormal [Recovered/Resolved]
  - Vomiting [Unknown]
  - Drug dose omission [Unknown]
  - Drug ineffective [Unknown]
  - Intentional drug misuse [Unknown]
